FAERS Safety Report 7531830-5 (Version None)
Quarter: 2011Q2

REPORT INFORMATION
  Report Type: 
  Country: None (occurrence: None)
  Receive Date: 20110608
  Receipt Date: 20110603
  Transmission Date: 20111010
  Serious: Yes (Disabling, Other)
  Sender: FDA-Public Use
  Company Number: FR-ROCHE-780829

PATIENT
  Sex: Female

DRUGS (4)
  1. BONIVA [Suspect]
     Indication: OSTEOPOROSIS
     Route: 065
     Dates: start: 20100501, end: 20100601
  2. ACTONEL [Suspect]
     Indication: OSTEOPOROSIS
     Route: 048
  3. DIDRONEL [Suspect]
     Indication: OSTEOPOROSIS
     Route: 048
     Dates: start: 19910101, end: 19980101
  4. AREDIA [Suspect]
     Indication: OSTEOPOROSIS
     Route: 042
     Dates: start: 19990101, end: 20000101

REACTIONS (2)
  - FRACTURE [None]
  - BONE PAIN [None]
